FAERS Safety Report 26217333 (Version 1)
Quarter: 2025Q4

REPORT INFORMATION
  Report Type: Spontaneous
  Country: US (occurrence: US)
  Receive Date: 20251231
  Receipt Date: 20251231
  Transmission Date: 20260117
  Serious: Yes (Death, Life-Threatening, Hospitalization, Other)
  Sender: AUROBINDO
  Company Number: US-MLMSERVICE-20251210-PI746079-00195-1

PATIENT
  Age: 86 Year
  Sex: Male

DRUGS (1)
  1. LEUPROLIDE [Suspect]
     Active Substance: LEUPROLIDE
     Indication: Prostate cancer stage II
     Dosage: 1 DOSAGE FORM, TOTAL (FIRST LEUPROLIDE INJECTION)
     Route: 065

REACTIONS (6)
  - Pituitary apoplexy [Fatal]
  - Hypertensive emergency [Fatal]
  - Seizure [Fatal]
  - Cardiac arrest [Fatal]
  - Haemorrhagic infarction [Fatal]
  - Hypotension [Fatal]
